FAERS Safety Report 6235836-8 (Version None)
Quarter: 2009Q2

REPORT INFORMATION
  Report Type: 
  Country: None (occurrence: None)
  Receive Date: 20090619
  Receipt Date: 20090616
  Transmission Date: 20091009
  Serious: Yes (Other)
  Sender: FDA-Public Use
  Company Number: US-ASTRAZENECA-2009UW15368

PATIENT
  Age: 81 Year
  Sex: Male

DRUGS (4)
  1. CRESTOR [Suspect]
     Route: 048
     Dates: start: 20081001, end: 20090101
  2. CRESTOR [Suspect]
     Route: 048
     Dates: start: 20090101, end: 20090612
  3. ASPIRIN [Concomitant]
     Dates: end: 20090612
  4. MICRONASE [Concomitant]

REACTIONS (4)
  - BLISTER [None]
  - MYALGIA [None]
  - PAIN IN EXTREMITY [None]
  - SKIN LESION [None]
